FAERS Safety Report 17413573 (Version 1)
Quarter: 2020Q1

REPORT INFORMATION
  Report Type: Spontaneous
  Country: US (occurrence: US)
  Receive Date: 20200129
  Receipt Date: 20200129
  Transmission Date: 20200409
  Serious: Yes (Other)
  Sender: FDA-Public Use
  Company Number: None

PATIENT
  Age: 66 Year
  Sex: Female
  Weight: 54.43 kg

DRUGS (8)
  1. MAGNESIUM [Concomitant]
     Active Substance: MAGNESIUM
  2. CALCIUM [Concomitant]
     Active Substance: CALCIUM
  3. ONDANSETRON 4MG TABLETS (ZOPRAN 4MG TABS) [Suspect]
     Active Substance: ONDANSETRON
     Indication: INFLUENZA
  4. SYNTHROID [Concomitant]
     Active Substance: LEVOTHYROXINE SODIUM
  5. ONDANSETRON 4MG TABLETS (ZOPRAN 4MG TABS) [Suspect]
     Active Substance: ONDANSETRON
     Indication: VOMITING
     Dosage: ?          QUANTITY:4 DF DOSAGE FORM;?
     Route: 048
     Dates: start: 20200106, end: 20200106
  6. PROBIOTICS [Concomitant]
     Active Substance: PROBIOTICS NOS
  7. ZINC COMBO [Concomitant]
  8. LEXAPRO [Concomitant]
     Active Substance: ESCITALOPRAM OXALATE

REACTIONS (4)
  - Sleep disorder [None]
  - Heart rate abnormal [None]
  - Abdominal discomfort [None]
  - Hallucination, visual [None]

NARRATIVE: CASE EVENT DATE: 20200106
